FAERS Safety Report 19715677 (Version 1)
Quarter: 2021Q3

REPORT INFORMATION
  Report Type: Report from Study
  Country: None (occurrence: ES)
  Receive Date: 20210818
  Receipt Date: 20210818
  Transmission Date: 20211014
  Serious: Yes (Other)
  Sender: FDA-Public Use
  Company Number: ES-BAUSCH-BL-2021-027532

PATIENT
  Age: 5 Year
  Sex: Male

DRUGS (8)
  1. FOSCARNET [Concomitant]
     Active Substance: FOSCARNET
     Indication: CYTOMEGALOVIRUS INFECTION
     Dates: start: 2017
  2. IMMUNOGLOBULIN [Concomitant]
     Indication: CYTOMEGALOVIRUS INFECTION
     Route: 042
     Dates: start: 2017
  3. LEFLUNOMIDE. [Concomitant]
     Active Substance: LEFLUNOMIDE
     Indication: CYTOMEGALOVIRUS INFECTION
     Dates: start: 2017
  4. VALGANCICLOVIR. [Concomitant]
     Active Substance: VALGANCICLOVIR
     Indication: CYTOMEGALOVIRUS INFECTION
     Dates: start: 2017
  5. GANCICLOVIR. [Suspect]
     Active Substance: GANCICLOVIR
     Indication: CYTOMEGALOVIRUS INFECTION
     Route: 065
     Dates: start: 2017
  6. ARTESUNATE [Concomitant]
     Active Substance: ARTESUNATE
     Indication: CYTOMEGALOVIRUS INFECTION
     Dates: start: 2017
  7. CIDOFOVIR. [Concomitant]
     Active Substance: CIDOFOVIR
     Indication: CYTOMEGALOVIRUS INFECTION
     Dates: start: 2017
  8. RITUXIMAB. [Concomitant]
     Active Substance: RITUXIMAB
     Indication: CYTOMEGALOVIRUS INFECTION
     Dates: start: 2017

REACTIONS (1)
  - Myelosuppression [Unknown]

NARRATIVE: CASE EVENT DATE: 2017
